FAERS Safety Report 8531713-8 (Version None)
Quarter: 2012Q3

REPORT INFORMATION
  Report Type: 
  Country: None (occurrence: None)
  Receive Date: 20120723
  Receipt Date: 20120711
  Transmission Date: 20120928
  Serious: Yes (Hospitalization)
  Sender: FDA-Public Use
  Company Number: FR-CELGENEUS-056-50794-12063879

PATIENT
  Sex: Female
  Weight: 100 kg

DRUGS (2)
  1. VIDAZA [Suspect]
     Dosage: 157.5 MILLIGRAM
     Route: 058
     Dates: start: 20120611, end: 20120615
  2. REVLIMID [Suspect]
     Dosage: 10 MILLIGRAM
     Route: 048
     Dates: start: 20120611, end: 20120628

REACTIONS (2)
  - CANDIDA PNEUMONIA [None]
  - SUBARACHNOID HAEMORRHAGE [None]
